FAERS Safety Report 24060516 (Version 1)
Quarter: 2024Q3

REPORT INFORMATION
  Report Type: Spontaneous
  Country: JP (occurrence: JP)
  Receive Date: 20240708
  Receipt Date: 20240708
  Transmission Date: 20241017
  Serious: Yes (Life-Threatening)
  Sender: CHEPLAPHARM
  Company Number: JP-CHEPLA-2024008360

PATIENT
  Age: 29 Year
  Sex: Female

DRUGS (8)
  1. GANCICLOVIR [Suspect]
     Active Substance: GANCICLOVIR
  2. MEROPENEM [Suspect]
     Active Substance: MEROPENEM
  3. VANCOMYCIN [Suspect]
     Active Substance: VANCOMYCIN
  4. ACYCLOVIR [Suspect]
     Active Substance: ACYCLOVIR
  5. METRONIDAZOLE [Suspect]
     Active Substance: METRONIDAZOLE
  6. MICAFUNGIN [Suspect]
     Active Substance: MICAFUNGIN SODIUM
  7. AMPHOTERICIN B [Suspect]
     Active Substance: AMPHOTERICIN B
  8. ITRACONAZOLE [Suspect]
     Active Substance: ITRACONAZOLE

REACTIONS (9)
  - Drug ineffective [Not Recovered/Not Resolved]
  - Pancytopenia [Recovered/Resolved]
  - Neutrophil count decreased [Recovered/Resolved]
  - Haemoglobin decreased [Recovered/Resolved]
  - Inflammation [Recovered/Resolved]
  - C-reactive protein increased [Recovered/Resolved]
  - Sepsis [Recovered/Resolved]
  - Mucormycosis [Recovered/Resolved]
  - Necrosis [Recovered/Resolved]
